FAERS Safety Report 8567715-5 (Version None)
Quarter: 2012Q3

REPORT INFORMATION
  Report Type: 
  Country: None (occurrence: None)
  Receive Date: 20120803
  Receipt Date: 20120723
  Transmission Date: 20120928
  Serious: Yes (Death)
  Sender: FDA-Public Use
  Company Number: US-MYLANLABS-2012S1013479

PATIENT
  Age: 74 Year
  Sex: Male
  Weight: 90.72 kg

DRUGS (4)
  1. VALPROIC ACID [Concomitant]
  2. ARTANE [Concomitant]
  3. CLOZAPINE [Suspect]
     Route: 048
     Dates: start: 20000401, end: 20120501
  4. CLOZAPINE [Suspect]
     Indication: SCHIZOPHRENIA
     Route: 048
     Dates: start: 20000401, end: 20120501

REACTIONS (5)
  - ASPIRATION [None]
  - TARDIVE DYSKINESIA [None]
  - DYSPHAGIA [None]
  - PNEUMONIA [None]
  - SEPSIS [None]
